FAERS Safety Report 17214077 (Version 1)
Quarter: 2019Q4

REPORT INFORMATION
  Report Type: Report from Study
  Country: ES (occurrence: ES)
  Receive Date: 20191230
  Receipt Date: 20191230
  Transmission Date: 20200122
  Serious: Yes (Hospitalization)
  Sender: FDA-Public Use
  Company Number: ES-ROCHE-2501885

PATIENT
  Age: 47 Year
  Sex: Female

DRUGS (4)
  1. TOPIRAMATO [Interacting]
     Active Substance: TOPIRAMATE
     Indication: INTENTIONAL OVERDOSE
     Route: 048
     Dates: start: 20190624, end: 20190624
  2. QUETIAPINA [QUETIAPINE] [Interacting]
     Active Substance: QUETIAPINE
     Indication: INTENTIONAL OVERDOSE
     Route: 048
     Dates: start: 20190624, end: 20190624
  3. PHENELZINE [Interacting]
     Active Substance: PHENELZINE
     Indication: INTENTIONAL OVERDOSE
     Route: 048
     Dates: start: 20190624, end: 20190624
  4. CLONAZEPAM. [Suspect]
     Active Substance: CLONAZEPAM
     Indication: INTENTIONAL OVERDOSE
     Route: 048
     Dates: start: 20190624, end: 20190624

REACTIONS (2)
  - Depressed level of consciousness [Recovered/Resolved]
  - Intentional overdose [Unknown]

NARRATIVE: CASE EVENT DATE: 20190625
